FAERS Safety Report 6708940-5 (Version None)
Quarter: 2010Q2

REPORT INFORMATION
  Report Type: 
  Country: None (occurrence: None)
  Receive Date: 20100504
  Receipt Date: 20100422
  Transmission Date: 20101027
  Serious: Yes (Death, Hospitalization)
  Sender: FDA-Public Use
  Company Number: NO-BAYER-200820865GPV

PATIENT
  Age: 26 Year
  Sex: Female

DRUGS (10)
  1. YASMIN [Suspect]
     Indication: ORAL CONTRACEPTION
     Route: 048
     Dates: start: 20060508
  2. CIPROFLOXACIN [Concomitant]
     Indication: URINARY TRACT INFECTION
  3. BREXIDOL [Concomitant]
     Indication: PAIN
  4. CIPRALEX [Concomitant]
     Dosage: 10 OR 20 MG TABLETS
  5. SLEEPING PILLS NOS [Concomitant]
  6. REMERON [Concomitant]
  7. CATAFLAM [Concomitant]
     Indication: MIGRAINE
  8. ZOMIG [Concomitant]
     Indication: MIGRAINE
     Route: 045
     Dates: start: 20070201
  9. SELEXID [Concomitant]
     Dates: start: 20070901
  10. TRIOBE [Concomitant]

REACTIONS (15)
  - ABDOMINAL PAIN UPPER [None]
  - BACK PAIN [None]
  - COLLAPSE OF LUNG [None]
  - DEEP VEIN THROMBOSIS [None]
  - DYSPNOEA [None]
  - DYSURIA [None]
  - HEART RATE INCREASED [None]
  - METRORRHAGIA [None]
  - NAUSEA [None]
  - PAIN IN EXTREMITY [None]
  - PALLOR [None]
  - POLLAKIURIA [None]
  - PULMONARY EMBOLISM [None]
  - PYREXIA [None]
  - URINARY TRACT INFECTION [None]
